FAERS Safety Report 9827342 (Version 7)
Quarter: 2014Q4

REPORT INFORMATION
  Report Type: Report from Study
  Country: DE (occurrence: DE)
  Receive Date: 20140117
  Receipt Date: 20141215
  Transmission Date: 20150529
  Serious: Yes (Death, Hospitalization)
  Sender: FDA-Public Use
  Company Number: DE-ROCHE-1333435

PATIENT
  Age: 64 Year
  Sex: Male
  Weight: 65.7 kg

DRUGS (28)
  1. PANTOZOL [Concomitant]
     Active Substance: PANTOPRAZOLE SODIUM
     Indication: ULCER
     Route: 065
     Dates: start: 20131020, end: 20140113
  2. TEPILTA [Concomitant]
     Active Substance: ALUMINUM HYDROXIDE\MAGNESIUM OXIDE\OXETHAZAINE
     Indication: OESOPHAGITIS
     Route: 065
     Dates: start: 20131227, end: 20140102
  3. NOVALGIN [Concomitant]
     Active Substance: METAMIZOLE SODIUM
     Route: 065
     Dates: start: 20140104, end: 20140104
  4. TRAMAL [Concomitant]
     Active Substance: TRAMADOL
     Indication: OESOPHAGEAL PAIN
     Route: 065
     Dates: start: 20140105, end: 20140105
  5. VFEND [Concomitant]
     Active Substance: VORICONAZOLE
     Indication: PNEUMONIA
     Route: 065
     Dates: start: 20131205, end: 20140114
  6. SODIUM CHLORIDE. [Concomitant]
     Active Substance: SODIUM CHLORIDE
     Indication: DEHYDRATION
     Route: 065
     Dates: start: 20131227, end: 20140101
  7. MIDAZOLAM [Concomitant]
     Active Substance: MIDAZOLAM\MIDAZOLAM HYDROCHLORIDE
     Indication: ASPIRATION BONE MARROW
     Route: 065
     Dates: start: 20140103, end: 20140103
  8. ERYTHROCYTES [Concomitant]
     Active Substance: HUMAN RED BLOOD CELL
     Indication: ANAEMIA
     Route: 065
     Dates: start: 20131107, end: 20140103
  9. MAGNESIOCARD [Concomitant]
     Active Substance: MAGNESIUM ASPARTATE HYDROCHLORIDE
     Indication: HYPOMAGNESAEMIA
     Route: 065
     Dates: start: 20131130, end: 20131216
  10. MORPHINE [Concomitant]
     Active Substance: MORPHINE
     Indication: PAIN
     Dosage: REPORTED AS ^MORPHIN^.
     Route: 065
     Dates: start: 20140114, end: 20140115
  11. UREA. [Concomitant]
     Active Substance: UREA
     Route: 065
     Dates: start: 20131206, end: 20140115
  12. TEPILTA [Concomitant]
     Active Substance: ALUMINUM HYDROXIDE\MAGNESIUM OXIDE\OXETHAZAINE
     Indication: OESOPHAGEAL PAIN
  13. NOVALGIN [Concomitant]
     Active Substance: METAMIZOLE SODIUM
     Indication: PYREXIA
     Route: 065
     Dates: start: 20131228, end: 20131228
  14. CLINDAMYCIN [Concomitant]
     Active Substance: CLINDAMYCIN\CLINDAMYCIN PHOSPHATE
     Indication: INFECTION
     Route: 065
     Dates: start: 20140105, end: 20140110
  15. THROMBOCYTES [Concomitant]
     Active Substance: UNSPECIFIED INGREDIENT
     Indication: THROMBOCYTOPENIA
     Route: 065
     Dates: start: 20131107, end: 20140113
  16. COTRIM [Concomitant]
     Active Substance: SULFAMETHOXAZOLE\TRIMETHOPRIM
     Indication: INFECTION
     Route: 065
     Dates: start: 20131228, end: 20140106
  17. CIPROBAY [Concomitant]
     Active Substance: CIPROFLOXACIN
     Indication: PNEUMONIA
     Route: 065
     Dates: start: 20131128, end: 20131226
  18. CIPROBAY [Concomitant]
     Active Substance: CIPROFLOXACIN
     Indication: PYREXIA
     Route: 065
     Dates: start: 20131128, end: 20131216
  19. BISACODYL. [Concomitant]
     Active Substance: BISACODYL
     Indication: CONSTIPATION
     Route: 065
     Dates: start: 20131230, end: 20131230
  20. BISACODYL. [Concomitant]
     Active Substance: BISACODYL
     Route: 065
     Dates: start: 20140104, end: 20140104
  21. CLINDAMYCIN [Concomitant]
     Active Substance: CLINDAMYCIN\CLINDAMYCIN PHOSPHATE
     Indication: INFECTION PROPHYLAXIS
     Route: 065
     Dates: start: 20131211, end: 20131220
  22. VISMODEGIB [Suspect]
     Active Substance: VISMODEGIB
     Indication: MYELOID LEUKAEMIA
     Dosage: LAST DOSE PRIOR TO MUCOSITIS: 12/JAN/2014
     Route: 048
     Dates: start: 20131108
  23. METOCLOPRAMIDE. [Concomitant]
     Active Substance: METOCLOPRAMIDE
     Indication: NAUSEA
     Dosage: REPORTED AS: ^MCP^.
     Route: 065
     Dates: start: 20131229, end: 20140113
  24. TRAMAL [Concomitant]
     Active Substance: TRAMADOL
     Indication: PAIN
     Route: 065
     Dates: start: 20140105, end: 20140113
  25. CLINDA-SAAR [Concomitant]
     Indication: PNEUMONIA
     Route: 065
     Dates: start: 20131212, end: 20131220
  26. MILAX [Concomitant]
     Indication: CONSTIPATION
     Route: 065
     Dates: start: 20131230, end: 20131230
  27. BELOC-ZOK [Concomitant]
     Active Substance: METOPROLOL SUCCINATE
     Indication: CARDIAC FAILURE
     Route: 065
     Dates: start: 20131020, end: 20140113
  28. MAGNESIOCARD [Concomitant]
     Active Substance: MAGNESIUM ASPARTATE HYDROCHLORIDE
     Route: 065
     Dates: start: 20140103, end: 20140113

REACTIONS (2)
  - Sepsis [Fatal]
  - Mucosal inflammation [Not Recovered/Not Resolved]

NARRATIVE: CASE EVENT DATE: 20140113
